FAERS Safety Report 25642495 (Version 1)
Quarter: 2025Q3

REPORT INFORMATION
  Report Type: Spontaneous
  Country: EU (occurrence: EU)
  Receive Date: 20250805
  Receipt Date: 20250805
  Transmission Date: 20251020
  Serious: Yes (Other)
  Sender: AMGEN
  Company Number: EU-AMGEN-DEUSP2025152043

PATIENT
  Age: 88 Year
  Sex: Male

DRUGS (3)
  1. XGEVA [Suspect]
     Active Substance: DENOSUMAB
     Indication: Product used for unknown indication
     Route: 065
  2. PLUVICTO [Concomitant]
     Active Substance: LUTETIUM LU-177 VIPIVOTIDE TETRAXETAN
  3. TRENANTONE [Concomitant]
     Active Substance: LEUPROLIDE ACETATE

REACTIONS (2)
  - Prostate cancer metastatic [Unknown]
  - Osteonecrosis of jaw [Unknown]

NARRATIVE: CASE EVENT DATE: 20180101
